FAERS Safety Report 18509097 (Version 6)
Quarter: 2022Q1

REPORT INFORMATION
  Report Type: Spontaneous
  Country: FR (occurrence: FR)
  Receive Date: 20201117
  Receipt Date: 20220317
  Transmission Date: 20220423
  Serious: Yes (Hospitalization, Other)
  Sender: FDA-Public Use
  Company Number: FR-AUROBINDO-AUR-APL-2020-056120

PATIENT
  Age: 64 Year
  Sex: Female
  Weight: 69 kg

DRUGS (9)
  1. ALPRAZOLAM [Suspect]
     Active Substance: ALPRAZOLAM
     Indication: Bipolar disorder
     Dosage: UNK
     Route: 065
  2. FUROSEMIDE [Suspect]
     Active Substance: FUROSEMIDE
     Indication: Nephrogenic diabetes insipidus
     Dosage: UNK
     Route: 065
  3. POLYETHYLENE GLYCOLS [Suspect]
     Active Substance: POLYETHYLENE GLYCOLS
     Indication: Gastrointestinal motility disorder
     Dosage: UNK
     Route: 065
  4. PANTOPRAZOLE [Suspect]
     Active Substance: PANTOPRAZOLE
     Indication: Product used for unknown indication
     Dosage: UNK
     Route: 065
  5. VALPROIC ACID [Suspect]
     Active Substance: VALPROIC ACID
     Indication: Product used for unknown indication
     Dosage: UNK
     Route: 065
  6. LITHIUM [Suspect]
     Active Substance: LITHIUM
     Indication: Bipolar disorder
     Dosage: UNK
     Route: 065
     Dates: start: 2014
  7. TIAPRIDE [Suspect]
     Active Substance: TIAPRIDE
     Indication: Bipolar disorder
     Dosage: UNK
     Route: 065
  8. VORTIOXETINE [Suspect]
     Active Substance: VORTIOXETINE
     Indication: Bipolar disorder
     Dosage: UNK
     Route: 065
  9. VALPROATE SODIUM [Concomitant]
     Active Substance: VALPROATE SODIUM
     Indication: Bipolar disorder
     Dosage: UNK
     Route: 065

REACTIONS (12)
  - Hyperaldosteronism [Recovering/Resolving]
  - Hypokalaemia [Recovering/Resolving]
  - Acute kidney injury [Recovering/Resolving]
  - Nephrogenic diabetes insipidus [Recovering/Resolving]
  - Metabolic alkalosis [Recovering/Resolving]
  - Hypovolaemia [Recovering/Resolving]
  - Dehydration [Recovering/Resolving]
  - Hyperchloraemia [Recovering/Resolving]
  - Toxicity to various agents [Recovering/Resolving]
  - Hypernatraemia [Recovering/Resolving]
  - Alkalosis [Recovering/Resolving]
  - Hyperosmolar state [Recovering/Resolving]
